FAERS Safety Report 6081345-9 (Version None)
Quarter: 2009Q1

REPORT INFORMATION
  Report Type: 
  Country: None (occurrence: None)
  Receive Date: 20090218
  Receipt Date: 20090212
  Transmission Date: 20090719
  Serious: Yes (Hospitalization, Disabling)
  Sender: FDA-Public Use
  Company Number: NO-JNJFOC-20090203309

PATIENT
  Sex: Female

DRUGS (3)
  1. HALDOL [Suspect]
     Indication: DEMENTIA
     Route: 048
  2. ARICEPT [Concomitant]
     Route: 003
  3. TOLVON [Concomitant]
     Route: 048

REACTIONS (2)
  - DEPRESSED LEVEL OF CONSCIOUSNESS [None]
  - PARKINSONISM [None]
